FAERS Safety Report 7786991-X (Version None)
Quarter: 2011Q3

REPORT INFORMATION
  Report Type: 
  Country: None (occurrence: None)
  Receive Date: 20110929
  Receipt Date: 20110924
  Transmission Date: 20111222
  Serious: Yes (Death)
  Sender: FDA-Public Use
  Company Number: CH-CELGENEUS-151-50794-11090938

PATIENT
  Sex: Male
  Weight: 52.5 kg

DRUGS (3)
  1. VIDAZA [Suspect]
     Dosage: 75MG/M2X7
     Route: 065
     Dates: start: 20090527, end: 20101108
  2. RED BLOOD CELLS [Concomitant]
     Route: 041
  3. PLATELETS [Concomitant]
     Route: 041

REACTIONS (1)
  - CARDIAC FAILURE [None]
